FAERS Safety Report 11044516 (Version 1)
Quarter: 2015Q2

REPORT INFORMATION
  Report Type: Report from Study
  Country: DE (occurrence: TR)
  Receive Date: 20150417
  Receipt Date: 20150417
  Transmission Date: 20150821
  Serious: Yes (Death)
  Sender: FDA-Public Use
  Company Number: DE-ACTELION-A-US2015-116600

PATIENT
  Age: 53 Year
  Sex: Female
  Weight: 65 kg

DRUGS (1)
  1. VENTAVIS [Suspect]
     Active Substance: ILOPROST
     Indication: PULMONARY HYPERTENSION
     Dosage: 9X1
     Route: 055
     Dates: start: 20090210

REACTIONS (1)
  - Internal haemorrhage [Fatal]

NARRATIVE: CASE EVENT DATE: 20150411
